FAERS Safety Report 8144463-7 (Version None)
Quarter: 2012Q1

REPORT INFORMATION
  Report Type: 
  Country: None (occurrence: None)
  Receive Date: 20120214
  Receipt Date: 20120208
  Transmission Date: 20120608
  Serious: Yes (Hospitalization)
  Sender: FDA-Public Use
  Company Number: 2011SP025638

PATIENT
  Age: 42 Year
  Sex: Female
  Weight: 101.1521 kg

DRUGS (4)
  1. AMBIEN [Concomitant]
  2. NUVARING [Suspect]
     Indication: CONTRACEPTION
     Dates: start: 20070619, end: 20080611
  3. PROZAC [Concomitant]
  4. WELLBUTRIN [Concomitant]

REACTIONS (12)
  - DEPRESSION [None]
  - ELECTROCARDIOGRAM QT PROLONGED [None]
  - INSOMNIA [None]
  - SINUS TACHYCARDIA [None]
  - DYSPNOEA EXERTIONAL [None]
  - PALPITATIONS [None]
  - PULMONARY EMBOLISM [None]
  - SLEEP DISORDER [None]
  - DYSPNOEA [None]
  - ANXIETY [None]
  - INJURY [None]
  - PAIN IN EXTREMITY [None]
